FAERS Safety Report 9121249 (Version 1)
Quarter: 2013Q1

REPORT INFORMATION
  Report Type: Spontaneous
  Country: US (occurrence: US)
  Receive Date: 20130225
  Receipt Date: 20130225
  Transmission Date: 20140127
  Serious: No
  Sender: FDA-Public Use
  Company Number: US-ENDO PHARMACEUTICALS INC.-FORT20120011

PATIENT
  Age: 31 Year
  Sex: Male

DRUGS (1)
  1. FORTESTA [Suspect]
     Indication: HYPOGONADISM
     Route: 061
     Dates: start: 2011, end: 20111128

REACTIONS (4)
  - Libido decreased [Unknown]
  - Drug screen positive [Unknown]
  - Fatigue [Unknown]
  - Blood testosterone decreased [Unknown]
